FAERS Safety Report 15402587 (Version 1)
Quarter: 2018Q3

REPORT INFORMATION
  Report Type: Spontaneous
  Country: US (occurrence: US)
  Receive Date: 20180917
  Receipt Date: 20180917
  Transmission Date: 20181010
  Serious: Yes (Death)
  Sender: FDA-Public Use
  Company Number: None

PATIENT
  Age: 49 Year
  Sex: Female
  Weight: 117.45 kg

DRUGS (1)
  1. AGGRASTAT [Suspect]
     Active Substance: TIROFIBAN HYDROCHLORIDE
     Indication: ANTICOAGULANT THERAPY
     Dosage: ?          OTHER FREQUENCY:0.15MCG/KG/MIN;OTHER ROUTE:IV INFUSION ADMINISTERED IN THE HOSPITAL?
     Dates: start: 20180719, end: 20180720

REACTIONS (5)
  - Haemoglobin decreased [None]
  - Cardiac arrest [None]
  - Shock haemorrhagic [None]
  - Disseminated intravascular coagulation [None]
  - Catheter site haematoma [None]

NARRATIVE: CASE EVENT DATE: 20180720
